FAERS Safety Report 21365590 (Version 2)
Quarter: 2022Q4

REPORT INFORMATION
  Report Type: Spontaneous
  Country: CA (occurrence: CA)
  Receive Date: 20220922
  Receipt Date: 20221222
  Transmission Date: 20230112
  Serious: Yes (Other)
  Sender: FDA-Public Use
  Company Number: CA-SAMSUNG BIOEPIS-SB-2022-23335

PATIENT
  Age: 54 Year
  Sex: Male
  Weight: 64 kg

DRUGS (2)
  1. INFLIXIMAB [Suspect]
     Active Substance: INFLIXIMAB
     Indication: Crohn^s disease
     Route: 042
  2. SOLU-CORTEF [Concomitant]
     Active Substance: HYDROCORTISONE SODIUM SUCCINATE
     Indication: Premedication
     Dosage: POWDER FOR SOLUTION INTRAMUSCULAR
     Route: 065

REACTIONS (12)
  - Accident at work [Recovered/Resolved]
  - Anxiety [Recovered/Resolved]
  - Blood pressure increased [Recovered/Resolved]
  - Hypertension [Recovered/Resolved]
  - Peripheral swelling [Recovered/Resolved]
  - Rash [Recovered/Resolved]
  - Vital functions abnormal [Recovered/Resolved]
  - Weight decreased [Recovered/Resolved]
  - Weight increased [Recovered/Resolved]
  - Intentional product use issue [Recovered/Resolved]
  - Off label use [Recovered/Resolved]
  - Inappropriate schedule of product administration [Recovered/Resolved]
